FAERS Safety Report 26005760 (Version 1)
Quarter: 2025Q4

REPORT INFORMATION
  Report Type: Spontaneous
  Country: EU (occurrence: EU)
  Receive Date: 20251106
  Receipt Date: 20251106
  Transmission Date: 20260117
  Serious: Yes (Other)
  Sender: SANDOZ
  Company Number: EU-002147023-PHHY2014DE026544

PATIENT
  Age: 18 Year
  Sex: Male

DRUGS (18)
  1. CYCLOSPORINE [Suspect]
     Active Substance: CYCLOSPORINE
     Indication: Factor VIII inhibition
     Dosage: UNK
     Route: 065
  2. CYCLOSPORINE [Suspect]
     Active Substance: CYCLOSPORINE
     Indication: Acquired haemophilia
  3. CAMPATH [Suspect]
     Active Substance: ALEMTUZUMAB
     Indication: Factor VIII inhibition
     Dosage: UNK
     Route: 065
  4. CAMPATH [Suspect]
     Active Substance: ALEMTUZUMAB
     Indication: Acquired haemophilia
  5. CELLCEPT [Suspect]
     Active Substance: MYCOPHENOLATE MOFETIL
     Indication: Factor VIII inhibition
     Dosage: DAILY DOSE: 600 MG/M2 MILLIGRAM(S)/SQ.  METER EVERY DAY
     Route: 065
  6. CELLCEPT [Suspect]
     Active Substance: MYCOPHENOLATE MOFETIL
     Indication: Acquired haemophilia
  7. CELLCEPT [Suspect]
     Active Substance: MYCOPHENOLATE MOFETIL
     Indication: Immune tolerance induction
  8. DEXAMETHASONE [Suspect]
     Active Substance: DEXAMETHASONE
     Indication: Factor VIII inhibition
     Dosage: 24 MG/M2/ DAY 1-4
     Route: 065
  9. DEXAMETHASONE [Suspect]
     Active Substance: DEXAMETHASONE
     Indication: Acquired haemophilia
  10. DEXAMETHASONE [Suspect]
     Active Substance: DEXAMETHASONE
     Indication: Immune tolerance induction
  11. ANTIHEMOPHILIC FACTOR HUMAN [Suspect]
     Active Substance: ANTIHEMOPHILIC FACTOR HUMAN
     Indication: Immune tolerance induction
     Dosage: 2X100 U/KG/D, 2X50U/KG/D RESP
     Route: 065
  12. ANTIHEMOPHILIC FACTOR HUMAN [Suspect]
     Active Substance: ANTIHEMOPHILIC FACTOR HUMAN
     Indication: Acquired haemophilia
  13. ANTIHEMOPHILIC FACTOR HUMAN [Suspect]
     Active Substance: ANTIHEMOPHILIC FACTOR HUMAN
     Indication: Anti factor VIII antibody test
  14. HUMAN IMMUNOGLOBULIN G [Suspect]
     Active Substance: HUMAN IMMUNOGLOBULIN G
     Indication: Immune tolerance induction
     Route: 065
  15. RITUXIMAB [Suspect]
     Active Substance: RITUXIMAB
     Indication: Anti factor VIII antibody increased
     Dosage: 375 MG/M2/D, WEEKLY
     Route: 065
  16. RITUXIMAB [Suspect]
     Active Substance: RITUXIMAB
     Indication: Acquired haemophilia
  17. RITUXIMAB [Suspect]
     Active Substance: RITUXIMAB
     Indication: Immune tolerance induction
  18. ANTIHEMOPHILIC FACTOR, HUMAN RECOMBINANT [Suspect]
     Active Substance: ANTIHEMOPHILIC FACTOR, HUMAN RECOMBINANT
     Indication: Acquired haemophilia
     Dosage: UNK
     Route: 065

REACTIONS (15)
  - Obesity [Unknown]
  - Condition aggravated [Unknown]
  - Psychotic disorder [Unknown]
  - Sepsis [Unknown]
  - Paronychia [Unknown]
  - Skin infection [Unknown]
  - Cytomegalovirus infection reactivation [Recovered/Resolved]
  - Factor VIII inhibition [Recovering/Resolving]
  - Agranulocytosis [Recovered/Resolved]
  - Pneumonia [Unknown]
  - Drug ineffective [Unknown]
  - Rebound effect [Unknown]
  - Drug ineffective for unapproved indication [Unknown]
  - No adverse event [Unknown]
  - Off label use [Unknown]
